FAERS Safety Report 24717677 (Version 2)
Quarter: 2024Q4

REPORT INFORMATION
  Report Type: Spontaneous
  Country: CN (occurrence: CN)
  Receive Date: 20241210
  Receipt Date: 20241217
  Transmission Date: 20250114
  Serious: Yes (Other)
  Sender: PFIZER
  Company Number: CN-PFIZER INC-PV202400157764

PATIENT
  Age: 46 Year
  Sex: Male
  Weight: 56 kg

DRUGS (3)
  1. PACLITAXEL [Suspect]
     Active Substance: PACLITAXEL
     Indication: Gastric cancer
     Dosage: 150 MG, 1X/DAY
     Route: 041
     Dates: start: 20220825, end: 20220825
  2. PACLITAXEL [Suspect]
     Active Substance: PACLITAXEL
     Dosage: 60 MG, 1X/DAY
     Route: 033
     Dates: start: 20220825, end: 20220825
  3. GIMERACIL\OTERACIL\TEGAFUR [Suspect]
     Active Substance: GIMERACIL\OTERACIL POTASSIUM\TEGAFUR
     Indication: Gastric cancer
     Dosage: 60 MG, 2X/DAY (D2-15)
     Route: 048
     Dates: start: 20220825, end: 20220903

REACTIONS (5)
  - Myelosuppression [Recovering/Resolving]
  - Septic shock [Recovering/Resolving]
  - Pyrexia [Recovering/Resolving]
  - Productive cough [Recovering/Resolving]
  - Off label use [Unknown]

NARRATIVE: CASE EVENT DATE: 20220825
